FAERS Safety Report 8213308-9 (Version None)
Quarter: 2012Q1

REPORT INFORMATION
  Report Type: 
  Country: None (occurrence: None)
  Receive Date: 20120315
  Receipt Date: 20120308
  Transmission Date: 20120608
  Serious: Yes (Other)
  Sender: FDA-Public Use
  Company Number: PHHY2011US15736

PATIENT
  Sex: Female

DRUGS (8)
  1. LEVOTHYROXINE SODIUM [Concomitant]
  2. VITAMIN D [Concomitant]
  3. GILENYA [Suspect]
     Indication: MULTIPLE SCLEROSIS
     Dosage: 0.5 MG, QD
     Route: 048
     Dates: start: 20110217
  4. GILENYA [Suspect]
     Dosage: UNK
  5. CALCIUM CARBONATE [Concomitant]
  6. SIMVASTATIN [Concomitant]
  7. THYROID HORMONES [Concomitant]
     Dosage: UNK UKN, UNK
  8. LOVAZA [Concomitant]

REACTIONS (7)
  - FATIGUE [None]
  - NASOPHARYNGITIS [None]
  - AMNESIA [None]
  - WEIGHT INCREASED [None]
  - FALL [None]
  - OSTEOPOROSIS [None]
  - INFLUENZA [None]
